FAERS Safety Report 5872626-X (Version None)
Quarter: 2008Q3

REPORT INFORMATION
  Report Type: 
  Country: None (occurrence: None)
  Receive Date: 20080905
  Receipt Date: 20070707
  Transmission Date: 20090109
  Serious: Yes (Hospitalization)
  Sender: FDA-Public Use
  Company Number: IT-ROCHE-571254

PATIENT
  Sex: Male
  Weight: 70 kg

DRUGS (2)
  1. PEGASYS [Suspect]
     Route: 065
     Dates: start: 20050627, end: 20070420
  2. RIBAVIRIN [Suspect]
     Route: 065
     Dates: start: 20050627, end: 20070420

REACTIONS (1)
  - TRANSAMINASES INCREASED [None]
